FAERS Safety Report 17849916 (Version 4)
Quarter: 2020Q3

REPORT INFORMATION
  Report Type: Spontaneous
  Country: AU (occurrence: AU)
  Receive Date: 20200602
  Receipt Date: 20200715
  Transmission Date: 20201103
  Serious: Yes (Life-Threatening, Hospitalization, Disabling, Other)
  Sender: FDA-Public Use
  Company Number: AU-ACCORD-183773

PATIENT
  Age: 32 Year
  Sex: Male

DRUGS (3)
  1. ETOPOSIDE. [Suspect]
     Active Substance: ETOPOSIDE
     Indication: TESTIS CANCER
     Dosage: TWO CYCLES?DAYS 1?5 IN A 21?DAY CYCLE
  2. CISPLATIN. [Suspect]
     Active Substance: CISPLATIN
     Indication: TESTIS CANCER
     Dosage: TWO CYCLES?DAYS 1?5 IN A 21?DAY CYCLE
  3. BLEOMYCIN [Suspect]
     Active Substance: BLEOMYCIN SULFATE
     Indication: TESTIS CANCER
     Dosage: TWO CYCLES?DAYS 1, 8 AND 15 IN A 21?DAY CYCLE

REACTIONS (2)
  - Hemianopia homonymous [Unknown]
  - Cerebrovascular accident [Not Recovered/Not Resolved]
